FAERS Safety Report 6600086-X (Version None)
Quarter: 2010Q1

REPORT INFORMATION
  Report Type: 
  Country: None (occurrence: None)
  Receive Date: 20100224
  Receipt Date: 20100217
  Transmission Date: 20100710
  Serious: Yes (Hospitalization)
  Sender: FDA-Public Use
  Company Number: PHHO2010TR02627

PATIENT
  Sex: Male
  Weight: 80 kg

DRUGS (6)
  1. AFINITOR [Suspect]
     Indication: METASTATIC RENAL CELL CARCINOMA
     Dosage: 10MG
     Route: 048
     Dates: end: 20100214
  2. RADIATION [Suspect]
  3. MESALAZINE [Concomitant]
     Dosage: 3X500MG
     Dates: start: 20100217
  4. PARACETAMOL [Concomitant]
     Dosage: UNK
     Dates: start: 20100217
  5. HYOSCINE HBR HYT [Concomitant]
     Dosage: UNK
  6. LANSOPRAZOLE [Concomitant]
     Dosage: UNK

REACTIONS (2)
  - GASTROENTERITIS RADIATION [None]
  - RECALL PHENOMENON [None]
